FAERS Safety Report 7907601-4 (Version None)
Quarter: 2011Q4

REPORT INFORMATION
  Report Type: 
  Country: None (occurrence: None)
  Receive Date: 20111110
  Receipt Date: 20111104
  Transmission Date: 20120403
  Serious: Yes (Other)
  Sender: FDA-Public Use
  Company Number: PHEH2009US16946

PATIENT
  Sex: Female
  Weight: 63.492 kg

DRUGS (9)
  1. WARFARIN SODIUM [Concomitant]
  2. ZOMETA [Suspect]
     Dosage: 4 MG, QMO
  3. FEMARA [Concomitant]
  4. GABAPENTIN [Concomitant]
  5. FORTICAL /KOR/ [Concomitant]
  6. CIPRO [Concomitant]
  7. AREDIA [Suspect]
     Dosage: 90 MG, UNK
  8. MIACALCIN [Concomitant]
  9. FLAGYL [Concomitant]

REACTIONS (35)
  - THYROID NEOPLASM [None]
  - AORTIC VALVE SCLEROSIS [None]
  - COLONIC POLYP [None]
  - OSTEOPOROSIS [None]
  - CARDIAC MURMUR [None]
  - TINNITUS [None]
  - BRONCHITIS [None]
  - OSTEONECROSIS OF JAW [None]
  - METASTASES TO SPINE [None]
  - MUSCULOSKELETAL PAIN [None]
  - EXOSTOSIS [None]
  - PAIN [None]
  - LUMBAR SPINAL STENOSIS [None]
  - GOITRE [None]
  - VISION BLURRED [None]
  - DIVERTICULUM [None]
  - DIVERTICULITIS [None]
  - OSTEOPENIA [None]
  - ANXIETY [None]
  - INTERVERTEBRAL DISC DEGENERATION [None]
  - CERUMEN IMPACTION [None]
  - CAROTID ARTERY STENOSIS [None]
  - NYSTAGMUS [None]
  - GENERAL PHYSICAL HEALTH DETERIORATION [None]
  - DYSPHAGIA [None]
  - VERTIGO [None]
  - HAEMORRHOIDS [None]
  - OSTEOARTHRITIS [None]
  - BLOOD CHOLESTEROL INCREASED [None]
  - ANHEDONIA [None]
  - VENOUS THROMBOSIS [None]
  - SPINAL OSTEOARTHRITIS [None]
  - HEART VALVE INCOMPETENCE [None]
  - PALPITATIONS [None]
  - CAROTID BRUIT [None]
